FAERS Safety Report 6443931-3 (Version None)
Quarter: 2009Q4

REPORT INFORMATION
  Report Type: 
  Country: None (occurrence: None)
  Receive Date: 20091113
  Receipt Date: 20091109
  Transmission Date: 20100525
  Serious: Yes (Death, Hospitalization)
  Sender: FDA-Public Use
  Company Number: TCI2009A04511

PATIENT
  Age: 74 Year
  Sex: Male

DRUGS (3)
  1. ACTOS [Suspect]
     Indication: TYPE 2 DIABETES MELLITUS
     Dosage: 15 MG (15 MG,1 D) PER ORAL ; 30 MG (30 MG,1 D) PER ORAL
     Route: 048
     Dates: end: 20090318
  2. ACTOS [Suspect]
     Indication: TYPE 2 DIABETES MELLITUS
     Dosage: 15 MG (15 MG,1 D) PER ORAL ; 30 MG (30 MG,1 D) PER ORAL
     Route: 048
     Dates: start: 20091018
  3. SULFONAMIDES, UREA DERIAVATIVES [Concomitant]

REACTIONS (1)
  - SUDDEN DEATH [None]
